FAERS Safety Report 7883435-4 (Version None)
Quarter: 2011Q4

REPORT INFORMATION
  Report Type: 
  Country: None (occurrence: None)
  Receive Date: 20111031
  Receipt Date: 20111020
  Transmission Date: 20120403
  Serious: Yes (Other)
  Sender: FDA-Public Use
  Company Number: 2011AP001274

PATIENT
  Age: 44 Year
  Sex: Male

DRUGS (6)
  1. RISPERIDONE [Suspect]
     Indication: PRODUCT USED FOR UNKNOWN INDICATION
  2. HYOSCINE HBR HYT [Concomitant]
  3. SERTRALINE HYDROCHLORIDE [Concomitant]
  4. IRON (IRON) [Concomitant]
  5. HYOSCINE HBR HYT [Suspect]
     Indication: IRRITABLE BOWEL SYNDROME
     Dosage: 10 MG; PO
     Route: 048
     Dates: end: 20110520
  6. CLOZARIL [Suspect]
     Indication: SCHIZOPHRENIA, PARANOID TYPE
     Dosage: 375 MG; PO; 400 MG; PO
     Route: 048

REACTIONS (14)
  - MICROCYTIC ANAEMIA [None]
  - MEAN CELL VOLUME DECREASED [None]
  - SEASONAL ALLERGY [None]
  - WHITE BLOOD CELL COUNT DECREASED [None]
  - WEIGHT DECREASED [None]
  - SALIVARY HYPERSECRETION [None]
  - NEUTROPENIA [None]
  - PERSECUTORY DELUSION [None]
  - DIZZINESS [None]
  - VOMITING [None]
  - IDEAS OF REFERENCE [None]
  - PLATELET COUNT DECREASED [None]
  - HALLUCINATION, AUDITORY [None]
  - RED BLOOD CELL ELLIPTOCYTES PRESENT [None]
